FAERS Safety Report 7135143-5 (Version None)
Quarter: 2010Q4

REPORT INFORMATION
  Report Type: 
  Country: None (occurrence: None)
  Receive Date: 20101203
  Receipt Date: 20101123
  Transmission Date: 20110411
  Serious: No
  Sender: FDA-Public Use
  Company Number: US-PFIZER INC-2010157015

PATIENT
  Sex: Male

DRUGS (2)
  1. PHENYTOIN [Suspect]
     Dosage: 100 MG FIVE PER DAY
  2. VITAMIN B-12 [Suspect]
     Dosage: UNK

REACTIONS (1)
  - DRUG SCREEN FALSE POSITIVE [None]
